FAERS Safety Report 10260957 (Version 1)
Quarter: 2014Q2

REPORT INFORMATION
  Report Type: Spontaneous
  Country: US (occurrence: US)
  Receive Date: 20140626
  Receipt Date: 20140626
  Transmission Date: 20141212
  Serious: No
  Sender: FDA-Public Use
  Company Number: US-PFIZER INC-2014173482

PATIENT
  Sex: Female

DRUGS (4)
  1. DICLOFENAC EPOLAMINE [Suspect]
     Dosage: UNK
  2. ESTRATEST [Suspect]
     Dosage: UNK
  3. ORTHO-NOVUM 7/7/7 [Suspect]
     Dosage: UNK
  4. ALLEGRA [Suspect]
     Dosage: UNK

REACTIONS (1)
  - Drug hypersensitivity [Unknown]
